FAERS Safety Report 25172687 (Version 1)
Quarter: 2025Q2

REPORT INFORMATION
  Report Type: Spontaneous
  Country: GB (occurrence: GB)
  Receive Date: 20250408
  Receipt Date: 20250408
  Transmission Date: 20250717
  Serious: Yes (Disabling, Other)
  Sender: SANDOZ
  Company Number: None

PATIENT
  Age: 32 Year
  Sex: Female
  Weight: 73 kg

DRUGS (14)
  1. RISPERIDONE [Suspect]
     Active Substance: RISPERIDONE
     Indication: Adverse drug reaction
     Route: 048
     Dates: start: 20250120, end: 20250305
  2. QUETIAPINE FUMARATE [Concomitant]
     Active Substance: QUETIAPINE FUMARATE
     Indication: Ill-defined disorder
     Route: 065
     Dates: start: 20240125, end: 20250109
  3. QUETIAPINE FUMARATE [Concomitant]
     Active Substance: QUETIAPINE FUMARATE
     Indication: Ill-defined disorder
     Dosage: 1 DF, QD
     Route: 065
     Dates: start: 20250109, end: 20250217
  4. CITALOPRAM [Concomitant]
     Active Substance: CITALOPRAM
     Indication: Ill-defined disorder
     Dosage: UNK UNK, QD,TAKE ONE TABLET EVERY MORNING
     Route: 065
     Dates: start: 20240125
  5. CLOTRIMAZOLE [Concomitant]
     Active Substance: CLOTRIMAZOLE
     Indication: Ill-defined disorder
     Route: 065
     Dates: start: 20250315, end: 20250325
  6. DESOGESTREL [Concomitant]
     Active Substance: DESOGESTREL
     Indication: Ill-defined disorder
     Dosage: UNK UNK, QD,TAKE ONE DAILY
     Route: 065
     Dates: start: 20241230
  7. DIAZEPAM [Concomitant]
     Active Substance: DIAZEPAM
     Indication: Ill-defined disorder
     Route: 065
     Dates: start: 20250227, end: 20250327
  8. Invita d3 [Concomitant]
     Indication: Ill-defined disorder
     Dosage: UNK UNK, QD,ONE DAILY AS A MAINTENANCE DOSE. ONCE YOUR MAIN...
     Route: 065
     Dates: start: 20240125
  9. LEVOTHYROXINE [Concomitant]
     Active Substance: LEVOTHYROXINE
     Indication: Ill-defined disorder
     Dosage: 75 UG, QD,TAKE ONE DAILY (TOTAL DAILY DOSE 75MCG)
     Route: 065
     Dates: start: 20240709
  10. LORAZEPAM [Concomitant]
     Active Substance: LORAZEPAM
     Indication: Ill-defined disorder
     Dosage: UNK UNK, BID,ONE TO BE TAKEN TWICE DAILY WHEN REQUIRED FOR S...
     Route: 065
     Dates: start: 20240125
  11. NITROFURANTOIN [Concomitant]
     Active Substance: NITROFURANTOIN
     Indication: Ill-defined disorder
     Dosage: 1 DF, BID
     Route: 065
     Dates: start: 20250228, end: 20250303
  12. QUETIAPINE [Concomitant]
     Active Substance: QUETIAPINE
     Indication: Ill-defined disorder
     Route: 065
     Dates: start: 20250121, end: 20250123
  13. VALPROATE SODIUM [Concomitant]
     Active Substance: VALPROATE SODIUM
     Indication: Ill-defined disorder
     Dosage: UNK UNK, BID,TAKE ONE TABLET TWICE A DAY (TOTAL DOSE 600MG T...
     Route: 065
     Dates: start: 20240125
  14. Zerobase [Concomitant]
     Indication: Ill-defined disorder
     Route: 065
     Dates: start: 20240828

REACTIONS (5)
  - Poor quality sleep [Recovered/Resolved]
  - Dysarthria [Recovered/Resolved]
  - Restlessness [Recovered/Resolved]
  - Joint stiffness [Recovered/Resolved]
  - Drooling [Recovered/Resolved]

NARRATIVE: CASE EVENT DATE: 20250204
